FAERS Safety Report 7424115-9 (Version None)
Quarter: 2011Q2

REPORT INFORMATION
  Report Type: 
  Country: None (occurrence: None)
  Receive Date: 20110411
  Receipt Date: 20110328
  Transmission Date: 20111010
  Serious: Yes (Hospitalization)
  Sender: FDA-Public Use
  Company Number: VISP-NO-1103S-0114

PATIENT
  Age: 3 Year
  Sex: Male
  Weight: 18 kg

DRUGS (1)
  1. VISIPAQUE [Suspect]
     Indication: PRODUCT USED FOR UNKNOWN INDICATION
     Dosage: 25 ML, SINGLE DOSE, INTRAVENOUS
     Route: 042
     Dates: start: 20110316, end: 20110316

REACTIONS (6)
  - LYMPHADENOPATHY [None]
  - NASAL CONGESTION [None]
  - RASH [None]
  - INFLUENZA LIKE ILLNESS [None]
  - PHARYNGEAL DISORDER [None]
  - ANAPHYLACTOID REACTION [None]
